FAERS Safety Report 20376676 (Version 1)
Quarter: 2022Q1

REPORT INFORMATION
  Report Type: Spontaneous
  Country: US (occurrence: US)
  Receive Date: 20220125
  Receipt Date: 20220125
  Transmission Date: 20220423
  Serious: No
  Sender: FDA-Public Use
  Company Number: US-GALDERMA-US2022000322

PATIENT

DRUGS (3)
  1. PROACTIV MD ADAPALENE ACNE TREATMENT [Suspect]
     Active Substance: ADAPALENE
     Indication: Skin discolouration
     Dosage: 1 DOSAGE FORM, QD
     Route: 061
     Dates: start: 20211024, end: 20211220
  2. Proactiv MD Ultra Gentle Cleanser [Concomitant]
     Indication: Skin discolouration
     Dosage: 1 DOSAGE FORM, QD
     Route: 061
     Dates: start: 20211024, end: 20211220
  3. Proactiv MD Ultra Hydrating Moisturizer [Concomitant]
     Indication: Skin discolouration
     Dosage: 1 DOSAGE FORM, QD
     Route: 061
     Dates: start: 20211024, end: 20211220

REACTIONS (5)
  - Dry skin [Recovered/Resolved]
  - Skin burning sensation [Recovered/Resolved]
  - Skin irritation [Recovered/Resolved]
  - Product use in unapproved indication [Recovered/Resolved]
  - Drug ineffective for unapproved indication [Recovered/Resolved]

NARRATIVE: CASE EVENT DATE: 20211024
